FAERS Safety Report 5834052-9 (Version None)
Quarter: 2008Q3

REPORT INFORMATION
  Report Type: 
  Country: None (occurrence: None)
  Receive Date: 20080801
  Receipt Date: 20080801
  Transmission Date: 20090109
  Serious: Yes (Life-Threatening, Hospitalization)
  Sender: FDA-Public Use
  Company Number: None

PATIENT

DRUGS (1)
  1. MORPHINE SULFATE [Suspect]
     Dosage: 70
     Dates: start: 20080530, end: 20080619

REACTIONS (11)
  - AGGRESSION [None]
  - DELIRIUM [None]
  - DYSARTHRIA [None]
  - DYSPNOEA [None]
  - ILL-DEFINED DISORDER [None]
  - INCORRECT DOSE ADMINISTERED [None]
  - PHARMACEUTICAL PRODUCT COMPLAINT [None]
  - POST PROCEDURAL INFECTION [None]
  - SINUSITIS [None]
  - SPEECH DISORDER [None]
  - UNRESPONSIVE TO STIMULI [None]
